FAERS Safety Report 12524551 (Version 1)
Quarter: 2016Q3

REPORT INFORMATION
  Report Type: Report from Study
  Country: US (occurrence: US)
  Receive Date: 20160704
  Receipt Date: 20160704
  Transmission Date: 20161109
  Serious: Yes (Death, Hospitalization, Other)
  Sender: FDA-Public Use
  Company Number: US-JNJFOC-20160109747

PATIENT
  Age: 67 Year
  Sex: Male

DRUGS (38)
  1. IMBRUVICA [Suspect]
     Active Substance: IBRUTINIB
     Indication: DIFFUSE LARGE B-CELL LYMPHOMA STAGE II
     Route: 048
     Dates: start: 20150331
  2. HYDROCHLOROTHIAZIDE. [Concomitant]
     Active Substance: HYDROCHLOROTHIAZIDE
  3. SIMVASTATIN. [Concomitant]
     Active Substance: SIMVASTATIN
  4. ZYRTEC [Concomitant]
     Active Substance: CETIRIZINE HYDROCHLORIDE
  5. IMBRUVICA [Suspect]
     Active Substance: IBRUTINIB
     Indication: DIFFUSE LARGE B-CELL LYMPHOMA STAGE II
     Route: 048
     Dates: start: 20150528
  6. RITUXAN [Concomitant]
     Active Substance: RITUXIMAB
     Indication: DIFFUSE LARGE B-CELL LYMPHOMA
  7. LANTUS [Concomitant]
     Active Substance: INSULIN GLARGINE
     Dosage: 100 UNIT/ML
     Route: 058
  8. DIPHENHYDRAMINE. [Concomitant]
     Active Substance: DIPHENHYDRAMINE
  9. FERROUS SULFATE. [Concomitant]
     Active Substance: FERROUS SULFATE
     Dosage: TABLE
     Route: 048
  10. IMBRUVICA [Suspect]
     Active Substance: IBRUTINIB
     Indication: NON-HODGKIN^S LYMPHOMA
     Route: 048
     Dates: start: 20150331
  11. IMBRUVICA [Suspect]
     Active Substance: IBRUTINIB
     Indication: DIFFUSE LARGE B-CELL LYMPHOMA
     Route: 048
     Dates: start: 20150528
  12. CELEXA [Concomitant]
     Active Substance: CITALOPRAM HYDROBROMIDE
     Route: 048
  13. INSULIN HUMAN INJECTION, ISOPHANE [Concomitant]
     Active Substance: INSULIN HUMAN
  14. ALLOPURINOL. [Concomitant]
     Active Substance: ALLOPURINOL
  15. CHANTIX [Concomitant]
     Active Substance: VARENICLINE TARTRATE
     Route: 048
  16. IMBRUVICA [Suspect]
     Active Substance: IBRUTINIB
     Indication: DIFFUSE LARGE B-CELL LYMPHOMA STAGE II
     Route: 048
  17. IMBRUVICA [Suspect]
     Active Substance: IBRUTINIB
     Indication: DIFFUSE LARGE B-CELL LYMPHOMA
     Route: 048
     Dates: start: 20150331
  18. IMBRUVICA [Suspect]
     Active Substance: IBRUTINIB
     Indication: MANTLE CELL LYMPHOMA
     Route: 048
     Dates: start: 20150331
  19. LISINOPRIL. [Concomitant]
     Active Substance: LISINOPRIL
  20. STOOL SOFTENER [Concomitant]
     Active Substance: DOCUSATE CALCIUM
  21. DOXEPIN [Concomitant]
     Active Substance: DOXEPIN
  22. ASPIRIN. [Concomitant]
     Active Substance: ASPIRIN
     Route: 048
  23. DIGOXIN. [Concomitant]
     Active Substance: DIGOXIN
  24. DOXYCYCLINE. [Concomitant]
     Active Substance: DOXYCYCLINE
  25. LATANOPROST. [Concomitant]
     Active Substance: LATANOPROST
     Dosage: EYEDROPS
     Route: 047
  26. CALCIUM W/COLECALCIFEROL [Concomitant]
     Active Substance: CALCIUM\CHOLECALCIFEROL
     Dosage: 1250 MG- 200 UNIT
     Route: 048
  27. IMBRUVICA [Suspect]
     Active Substance: IBRUTINIB
     Indication: NON-HODGKIN^S LYMPHOMA
     Route: 048
     Dates: start: 20150528
  28. IRON [Concomitant]
     Active Substance: IRON
  29. DILTIAZEM. [Concomitant]
     Active Substance: DILTIAZEM
  30. CLINDAMYCIN [Concomitant]
     Active Substance: CLINDAMYCIN\CLINDAMYCIN PHOSPHATE
     Route: 048
  31. IMBRUVICA [Suspect]
     Active Substance: IBRUTINIB
     Indication: NON-HODGKIN^S LYMPHOMA
     Route: 048
  32. IMBRUVICA [Suspect]
     Active Substance: IBRUTINIB
     Indication: DIFFUSE LARGE B-CELL LYMPHOMA
     Route: 048
  33. IMBRUVICA [Suspect]
     Active Substance: IBRUTINIB
     Indication: MANTLE CELL LYMPHOMA
     Route: 048
  34. BENAZEPRIL AND HYDROCHLOROTHIAZIDE [Concomitant]
     Active Substance: BENAZEPRIL HYDROCHLORIDE\HYDROCHLOROTHIAZIDE
     Dosage: 20 MG/12.5 MG
     Route: 048
  35. HYDROXYZINE HCL [Concomitant]
     Active Substance: HYDROXYZINE HYDROCHLORIDE
     Route: 048
  36. IMBRUVICA [Suspect]
     Active Substance: IBRUTINIB
     Indication: MANTLE CELL LYMPHOMA
     Route: 048
     Dates: start: 20150528
  37. VITAMIN D [Concomitant]
     Active Substance: CHOLECALCIFEROL
  38. SPIRIVA [Concomitant]
     Active Substance: TIOTROPIUM BROMIDE MONOHYDRATE
     Dosage: INHALER
     Route: 055

REACTIONS (19)
  - Chronic obstructive pulmonary disease [Recovered/Resolved]
  - Hypotension [Unknown]
  - Anaemia [Unknown]
  - Insomnia [Unknown]
  - Acute respiratory distress syndrome [Fatal]
  - Acute respiratory failure [Recovered/Resolved]
  - Myalgia [Unknown]
  - Pancytopenia [Unknown]
  - Atrial fibrillation [Recovering/Resolving]
  - Skin infection [Recovered/Resolved]
  - Hallucination [Unknown]
  - Blood glucose increased [Recovering/Resolving]
  - Rash [Recovered/Resolved]
  - Pertussis [Unknown]
  - Neutropenic sepsis [Unknown]
  - Otitis externa [Unknown]
  - Pneumonia [Recovered/Resolved]
  - Disease progression [Unknown]
  - Gait disturbance [Unknown]

NARRATIVE: CASE EVENT DATE: 201505
